FAERS Safety Report 19286526 (Version 5)
Quarter: 2021Q4

REPORT INFORMATION
  Report Type: Report from Study
  Country: US (occurrence: US)
  Receive Date: 20210522
  Receipt Date: 20211230
  Transmission Date: 20220304
  Serious: No
  Sender: FDA-Public Use
  Company Number: NVSC2021US107195

PATIENT
  Sex: Male

DRUGS (3)
  1. ENTRESTO [Suspect]
     Active Substance: SACUBITRIL\VALSARTAN
     Indication: Product used for unknown indication
     Dosage: 49.51 MG, BID
     Route: 048
     Dates: start: 20210303
  2. ENTRESTO [Suspect]
     Active Substance: SACUBITRIL\VALSARTAN
     Dosage: 97103 MG, BID
     Route: 048
  3. ENTRESTO [Suspect]
     Active Substance: SACUBITRIL\VALSARTAN
     Dosage: 97103 MG, BID
     Route: 048
     Dates: start: 20210303

REACTIONS (5)
  - Weight fluctuation [Unknown]
  - Sleep apnoea syndrome [Unknown]
  - Memory impairment [Unknown]
  - Ligament sprain [Unknown]
  - Contusion [Unknown]
